FAERS Safety Report 8987159 (Version 1)
Quarter: 2012Q4

REPORT INFORMATION
  Report Type: 
  Country: GB (occurrence: GB)
  Receive Date: 20121226
  Receipt Date: 20121226
  Transmission Date: 20130627
  Serious: Yes (Disabling)
  Sender: FDA-Public Use
  Company Number: GB-WATSON-2012-22385

PATIENT
  Age: 64 Year
  Sex: Female

DRUGS (3)
  1. SIMVASTATIN (UNKNOWN) [Suspect]
     Indication: BLOOD CHOLESTEROL INCREASED
     Dosage: 20 mg, unknown
     Route: 048
     Dates: start: 200603, end: 200603
  2. ATORVASTATIN (UNKNOWN) [Suspect]
     Indication: BLOOD CHOLESTEROL INCREASED
     Dosage: 10 mg, unknown
     Route: 048
     Dates: start: 200603, end: 201205
  3. FLUOXETINE [Concomitant]
     Indication: PRODUCT USED FOR UNKNOWN INDICATION
     Dosage: Long standing use.
     Route: 065

REACTIONS (3)
  - Rash [Recovered/Resolved]
  - Psoriasis [Recovered/Resolved]
  - Eczema [Recovered/Resolved]
